FAERS Safety Report 9541997 (Version 1)
Quarter: 2013Q3

REPORT INFORMATION
  Report Type: Spontaneous
  Country: US (occurrence: US)
  Receive Date: 20130923
  Receipt Date: 20130923
  Transmission Date: 20140515
  Serious: Yes (Hospitalization, Disabling)
  Sender: FDA-Public Use
  Company Number: US-SANOFI-AVENTIS-2013SA092723

PATIENT
  Age: 46 Year
  Sex: Female

DRUGS (1)
  1. LANTUS [Suspect]
     Indication: DIABETES MELLITUS
     Dosage: DOSE:45 UNIT(S)
     Route: 058

REACTIONS (3)
  - Staphylococcal infection [Not Recovered/Not Resolved]
  - Gangrene [Not Recovered/Not Resolved]
  - Gait disturbance [Not Recovered/Not Resolved]
